FAERS Safety Report 8879087 (Version 1)
Quarter: 2012Q4

REPORT INFORMATION
  Report Type: Spontaneous
  Country: US (occurrence: None)
  Receive Date: 20121031
  Receipt Date: 20121031
  Transmission Date: 20130627
  Serious: Yes (Hospitalization)
  Sender: FDA-Public Use
  Company Number: None

PATIENT
  Age: 66 Year
  Sex: Female
  Weight: 46.45 kg

DRUGS (10)
  1. ERLOTINIB [Suspect]
     Indication: NON-SMALL CELL LUNG CANCER
     Dates: start: 20121010
  2. HYDROXYCHLOROQUINE [Suspect]
     Dosage: 1000mg10
     Dates: start: 20121010
  3. KEPPRA [Concomitant]
  4. FLUTICASONE NASAL SPRAY [Concomitant]
  5. AMLODIPINE [Concomitant]
  6. DEXAMETHASONE [Concomitant]
  7. IPRATROPIUM AND ALBUTEROL SULFATE INHALER [Concomitant]
  8. OMEPRAZOLE [Concomitant]
  9. NYSTATIS SUSP (MOUTHWASH) [Concomitant]
  10. OXYCODONE [Concomitant]

REACTIONS (5)
  - Asthenia [None]
  - Hypophagia [None]
  - Diarrhoea [None]
  - Fatigue [None]
  - Hypovolaemia [None]
